FAERS Safety Report 5117715-2 (Version None)
Quarter: 2006Q3

REPORT INFORMATION
  Report Type: 
  Country: None (occurrence: None)
  Receive Date: 20060929
  Receipt Date: 20060828
  Transmission Date: 20061208
  Serious: Yes (Hospitalization, Other)
  Sender: FDA-Public Use
  Company Number: US-BRISTOL-MYERS SQUIBB COMPANY-13491212

PATIENT
  Age: 82 Year
  Sex: Female
  Weight: 75 kg

DRUGS (10)
  1. SPRYCEL TABS [Suspect]
     Indication: ACUTE LYMPHOCYTIC LEUKAEMIA
     Route: 048
     Dates: start: 20060803
  2. ATENOLOL [Concomitant]
  3. ALLOPURINOL [Concomitant]
  4. LOPERAMIDE [Concomitant]
  5. GUAIFENESIN [Concomitant]
  6. LASIX [Concomitant]
  7. TYLENOL [Concomitant]
  8. LORAZEPAM [Concomitant]
  9. DOLASETRON [Concomitant]
  10. DIPHENHYDRAMINE HCL [Concomitant]

REACTIONS (2)
  - BLOOD CREATININE INCREASED [None]
  - PLEURAL EFFUSION [None]
